FAERS Safety Report 7902259-2 (Version None)
Quarter: 2011Q4

REPORT INFORMATION
  Report Type: 
  Country: None (occurrence: None)
  Receive Date: 20111108
  Receipt Date: 20111026
  Transmission Date: 20120403
  Serious: Yes (Other)
  Sender: FDA-Public Use
  Company Number: IN-MYLANLABS-2011S1022435

PATIENT
  Age: 40 Year
  Sex: Male

DRUGS (2)
  1. DICLOFENAC SODIUM [Suspect]
     Dosage: 4 TABLERS OF NSAID PER DAY (ARTICLE TEXT UNCLEAR)
  2. IBUPROFEN [Suspect]
     Dosage: 4 TABLETS OF NSAID PER DAY (ARTICLE TEXT UNCLEAR)

REACTIONS (2)
  - PYLORIC STENOSIS [None]
  - DUODENAL OBSTRUCTION [None]
